FAERS Safety Report 20231758 (Version 1)
Quarter: 2021Q4

REPORT INFORMATION
  Report Type: Spontaneous
  Country: US (occurrence: US)
  Receive Date: 20211227
  Receipt Date: 20211227
  Transmission Date: 20220303
  Serious: No
  Sender: FDA-Public Use
  Company Number: US-AVEO ONCOLOGY-2021-AVEO-US003662

PATIENT

DRUGS (4)
  1. FOTIVDA [Suspect]
     Active Substance: TIVOZANIB HYDROCHLORIDE
     Indication: Renal cell carcinoma
     Dosage: 1.34 MG, DAILY X 21 DAYS OFF 7
     Route: 048
     Dates: start: 20210725
  2. METOPROLOL SUCCINATE [Concomitant]
     Active Substance: METOPROLOL SUCCINATE
  3. NORVASC [Concomitant]
     Active Substance: AMLODIPINE BESYLATE
  4. OMEPRAZOLE [Concomitant]
     Active Substance: OMEPRAZOLE

REACTIONS (1)
  - COVID-19 [Recovering/Resolving]

NARRATIVE: CASE EVENT DATE: 20211001
